FAERS Safety Report 24289431 (Version 1)
Quarter: 2024Q3

REPORT INFORMATION
  Report Type: Spontaneous
  Country: US (occurrence: US)
  Receive Date: 20240906
  Receipt Date: 20240906
  Transmission Date: 20241016
  Serious: Yes (Other)
  Sender: CELLTRION
  Company Number: US-CELLTRION INC.-2024US021140

PATIENT

DRUGS (2)
  1. BEVACIZUMAB [Suspect]
     Active Substance: BEVACIZUMAB
     Indication: Retinopathy of prematurity
     Dosage: AT 32 WEEKS PMA, THERE WAS NOTABLE ROP PROGRESSION TO STAGE 3 ROP IN ZONE I WITHOUT PLUS DISEASE OU.
  2. BEVACIZUMAB [Suspect]
     Active Substance: BEVACIZUMAB
     Dosage: AT 42 WEEKS, 0.625 MG/0.025ML BEVACIZUMAB INJECTED 1.5 MM BEHIND THE LIMBUS TEMPORALLY ON A 32-GAUGE

REACTIONS (3)
  - Glaucoma [Recovering/Resolving]
  - Chorioretinal folds [Recovered/Resolved]
  - Intentional product use issue [Unknown]
